FAERS Safety Report 18160711 (Version 1)
Quarter: 2020Q3

REPORT INFORMATION
  Report Type: Report from Study
  Country: US (occurrence: US)
  Receive Date: 20200818
  Receipt Date: 20200818
  Transmission Date: 20201103
  Serious: Yes (Death)
  Sender: FDA-Public Use
  Company Number: US-ASTRAZENECA-2020SF03338

PATIENT
  Age: 81 Year
  Sex: Male

DRUGS (10)
  1. PREDNISONE. [Concomitant]
     Active Substance: PREDNISONE
  2. AVODART [Concomitant]
     Active Substance: DUTASTERIDE
  3. UROXATRAL [Concomitant]
     Active Substance: ALFUZOSIN HYDROCHLORIDE
  4. NASONEX [Concomitant]
     Active Substance: MOMETASONE FUROATE
  5. SIMVASTATIN. [Concomitant]
     Active Substance: SIMVASTATIN
  6. REMERON [Concomitant]
     Active Substance: MIRTAZAPINE
  7. CLARINEX [Concomitant]
     Active Substance: DESLORATADINE
  8. LUNESTA [Concomitant]
     Active Substance: ESZOPICLONE
  9. MYSOLINE [Concomitant]
     Active Substance: PRIMIDONE
  10. TAGRISSO [Suspect]
     Active Substance: OSIMERTINIB
     Indication: NON-SMALL CELL LUNG CANCER
     Route: 048

REACTIONS (1)
  - Death [Fatal]

NARRATIVE: CASE EVENT DATE: 2020
